FAERS Safety Report 23406072 (Version 1)
Quarter: 2024Q1

REPORT INFORMATION
  Report Type: Spontaneous
  Country: US (occurrence: None)
  Receive Date: 20240114
  Receipt Date: 20240114
  Transmission Date: 20240410
  Serious: Yes (Hospitalization)
  Sender: FDA-Public Use
  Company Number: None

PATIENT
  Age: 69 Year
  Sex: Male
  Weight: 99 kg

DRUGS (2)
  1. PREGABALIN [Suspect]
     Active Substance: PREGABALIN
     Indication: Neuropathy peripheral
     Dates: start: 20230301
  2. LOSARTAN [Concomitant]
     Active Substance: LOSARTAN

REACTIONS (7)
  - Disorientation [None]
  - Anxiety [None]
  - Malaise [None]
  - Therapy interrupted [None]
  - Confusional state [None]
  - Near death experience [None]
  - Withdrawal syndrome [None]

NARRATIVE: CASE EVENT DATE: 20230915
